FAERS Safety Report 12284296 (Version 5)
Quarter: 2016Q3

REPORT INFORMATION
  Report Type: Spontaneous
  Country: JP (occurrence: JP)
  Receive Date: 20160420
  Receipt Date: 20160711
  Transmission Date: 20161109
  Serious: Yes (Death, Life-Threatening, Hospitalization, Disabling, Other)
  Sender: FDA-Public Use
  Company Number: JP-009507513-1604JPN011784

PATIENT
  Age: 74 Year
  Sex: Female
  Weight: 42 kg

DRUGS (8)
  1. E KEPPRA [Suspect]
     Active Substance: LEVETIRACETAM
     Indication: PROPHYLAXIS
     Dosage: 500 MG, TWICE A DAY
     Route: 048
     Dates: start: 20160113, end: 20160301
  2. OLMETEC [Concomitant]
     Active Substance: OLMESARTAN MEDOXOMIL
     Indication: HYPERTENSION
     Dosage: 10 MG, DIVIDED DOSE, FREQUENCY UNKNOWN
     Route: 048
     Dates: end: 20160301
  3. ADALAT CC [Concomitant]
     Active Substance: NIFEDIPINE
     Indication: HYPERTENSION
     Dosage: 40 MG, QD, , DIVIDED DOSE FREQUENCY UNKNOWN.
     Route: 048
     Dates: end: 20160301
  4. BAKTAR [Suspect]
     Active Substance: SULFAMETHOXAZOLE\TRIMETHOPRIM
     Indication: PROPHYLAXIS
     Dosage: EVERY OTHER DAY, IN THE MORNING AND EVENING
     Route: 048
     Dates: start: 20160216, end: 20160301
  5. WARKMIN [Concomitant]
     Active Substance: ALFACALCIDOL
     Indication: ANXIETY
     Dosage: 0.5 MICROGRAM, DIVIDED DOSE, FREQUENCY UNKNOWN
     Route: 048
     Dates: end: 20160301
  6. ETIZOLAM [Concomitant]
     Active Substance: ETIZOLAM
     Indication: ANXIETY
     Dosage: 0.5 MG, QD
     Route: 048
     Dates: end: 20160301
  7. TEMODAL [Suspect]
     Active Substance: TEMOZOLOMIDE
     Indication: GLIOBLASTOMA
     Dosage: DAILY DOSAGE UNKNOWN
     Route: 048
     Dates: start: 20160113, end: 20160224
  8. MAGNESIUM OXIDE. [Concomitant]
     Active Substance: MAGNESIUM OXIDE
     Indication: CONSTIPATION
     Dosage: 330 MG, TID
     Route: 048
     Dates: end: 20160301

REACTIONS (13)
  - Disseminated intravascular coagulation [Fatal]
  - Rash [Recovering/Resolving]
  - Cerebral infarction [Recovered/Resolved with Sequelae]
  - Hypoalbuminaemia [Not Recovered/Not Resolved]
  - Device related infection [Not Recovered/Not Resolved]
  - Blood pressure decreased [Fatal]
  - Renal disorder [Fatal]
  - Hypophagia [Not Recovered/Not Resolved]
  - Generalised oedema [Not Recovered/Not Resolved]
  - Multiple organ dysfunction syndrome [Fatal]
  - Diarrhoea [Fatal]
  - Sepsis [Not Recovered/Not Resolved]
  - Lymphocyte count decreased [Unknown]

NARRATIVE: CASE EVENT DATE: 20160216
